FAERS Safety Report 25869080 (Version 2)
Quarter: 2025Q4

REPORT INFORMATION
  Report Type: Spontaneous
  Country: CN (occurrence: CN)
  Receive Date: 20251001
  Receipt Date: 20251005
  Transmission Date: 20260117
  Serious: Yes (Other)
  Sender: BRISTOL-MYERS SQUIBB COMPANY
  Company Number: CN-BRISTOL-MYERS SQUIBB COMPANY-2025-132224

PATIENT
  Age: 60 Year
  Sex: Male

DRUGS (7)
  1. TRIAMCINOLONE ACETONIDE [Suspect]
     Active Substance: TRIAMCINOLONE ACETONIDE
     Indication: Endocrine ophthalmopathy
     Dosage: 5 PERIBULBAR INJECTIONS OF TRIAMCINOLONE ACETONIDE (TA) 40 MG EVERY 2 WEEKS
  2. METHYLPREDNISOLONE [Suspect]
     Active Substance: METHYLPREDNISOLONE
     Indication: Endocrine ophthalmopathy
     Dosage: 4.5 G OF METHYLPREDNISOLONE, ADMINISTERED IN 10 WEEKLY INFUSIONS (3 CONSECUTIVE DAYS OF INFUSIONS OF 0.5 G DURING THE FIRST WEEK, 3 WEEKLY INFUSIONS OF 0.5 G, FOLLOWED BY 6 WEEKLY INFUSIONS OF 0.25 G)
  3. METHYLPREDNISOLONE [Suspect]
     Active Substance: METHYLPREDNISOLONE
     Dosage: 4.5 G OF METHYLPREDNISOLONE, ADMINISTERED IN 10 WEEKLY INFUSIONS (3 CONSECUTIVE DAYS OF INFUSIONS OF 0.5 G DURING THE FIRST WEEK, 3 WEEKLY INFUSIONS OF 0.5 G, FOLLOWED BY 6 WEEKLY INFUSIONS OF 0.25 G)
  4. METHYLPREDNISOLONE [Suspect]
     Active Substance: METHYLPREDNISOLONE
     Dosage: 4.5 G OF METHYLPREDNISOLONE, ADMINISTERED IN 10 WEEKLY INFUSIONS (3 CONSECUTIVE DAYS OF INFUSIONS OF 0.5 G DURING THE FIRST WEEK, 3 WEEKLY INFUSIONS OF 0.5 G, FOLLOWED BY 6 WEEKLY INFUSIONS OF 0.25 G)
  5. METHIMAZOLE [Concomitant]
     Active Substance: METHIMAZOLE
     Indication: Thyroid disorder
  6. METHIMAZOLE [Concomitant]
     Active Substance: METHIMAZOLE
  7. METHIMAZOLE [Concomitant]
     Active Substance: METHIMAZOLE

REACTIONS (2)
  - Central serous chorioretinopathy [Recovering/Resolving]
  - Off label use [Unknown]
